FAERS Safety Report 4711636-2 (Version None)
Quarter: 2005Q3

REPORT INFORMATION
  Report Type: 
  Country: None (occurrence: None)
  Receive Date: 20050712
  Receipt Date: 20050704
  Transmission Date: 20060218
  Serious: Yes (Other)
  Sender: FDA-Public Use
  Company Number: PHNR2005AU01048

PATIENT
  Age: 27 Year
  Sex: Female

DRUGS (4)
  1. TEGRETOL [Suspect]
     Dosage: 1 G, QD
     Route: 048
  2. IMPLANON [Suspect]
     Dates: start: 20020801, end: 20040514
  3. IMPLANON [Suspect]
     Dates: start: 20040514, end: 20050420
  4. LEVOTHYROXINE SODIUM [Concomitant]

REACTIONS (5)
  - DRUG EXPOSURE DURING PREGNANCY [None]
  - DRUG INTERACTION [None]
  - METRORRHAGIA [None]
  - PREGNANCY WITH IMPLANT CONTRACEPTIVE [None]
  - UNINTENDED PREGNANCY [None]
